FAERS Safety Report 7753810 (Version 8)
Quarter: 2014Q2

REPORT INFORMATION
  Report Type: Report from Study
  Country: FR (occurrence: FR)
  Receive Date: 20110110
  Receipt Date: 20140630
  Transmission Date: 20141212
  Serious: Yes (Hospitalization, Other)
  Sender: FDA-Public Use
  Company Number: FR-ROCHE-751430

PATIENT
  Age: 9 Year
  Sex: Male
  Weight: 25.9 kg

DRUGS (29)
  1. BEVACIZUMAB [Suspect]
     Indication: RHABDOMYOSARCOMA
     Dosage: DOSAGE FORM: 7.5 MG/KG, LAST DOSE PRIOR TO SAE: 05 JANUARY 2011,LAST DOSE PRIOR TO CONVULSIVE CRISIS
     Route: 042
  2. DACTINOMYCIN [Suspect]
     Indication: RHABDOMYOSARCOMA
     Dosage: FORM: 1.5 MG/M2, LAST DOSE PRIOR TO SAE: 05 JANUARY 2011,LAST DOSE PRIOR TO CONVULSIVE CRISIS:15/DEC
     Route: 042
  3. IFOSFAMIDE [Suspect]
     Indication: RHABDOMYOSARCOMA
     Dosage: DOSAGE:6G/M2, LAST DOSE PRIOR TO CONVULSIVE CRISIS:15/DEC/2010
     Route: 042
     Dates: start: 20101103, end: 20101216
  4. BECOTIDE [Suspect]
     Indication: PRODUCT USED FOR UNKNOWN INDICATION
     Route: 065
     Dates: start: 20120405, end: 20120427
  5. VINORELBINE [Suspect]
     Indication: RHABDOMYOSARCOMA
     Dosage: LAST DOSE PRIOR TO SECOND DOSE OF EPISTAXIS:10/APR/2012
     Route: 042
     Dates: start: 20110610
  6. CYCLOPHOSPHAMIDE [Suspect]
     Indication: RHABDOMYOSARCOMA
     Dosage: LAST DOSE PRIOR TO GUM BLEEDING AND EPISTAXIS:06/JAN/2011
     Route: 042
     Dates: start: 20110105
  7. VINCRISTINE [Suspect]
     Indication: RHABDOMYOSARCOMA
     Dosage: LAST DOSE PRIOR TO CONVULSIVE CRISIS:15/DEC/2010, LAST DOSE PRIOR TO MUCOSITIS:05/JAN/2011
     Route: 042
     Dates: start: 20101103
  8. DOXORUBICIN [Suspect]
     Indication: RHABDOMYOSARCOMA
     Dosage: LAST DOSE PRIOR TO CONVULSIVE CRISIS:15/DEC/2010, LAST DOSE PRIOR TO MUCOSITIS:06/JAN/2011
     Route: 042
     Dates: start: 20101103
  9. ROCEPHINE [Concomitant]
     Route: 065
     Dates: start: 20101223, end: 20110103
  10. PROCTOLOG [Concomitant]
  11. MORPHINE [Concomitant]
     Route: 065
     Dates: start: 20101102, end: 20101111
  12. KETAMINE [Concomitant]
  13. LAROXYL [Concomitant]
  14. FLIXOTIDE [Concomitant]
     Dosage: TDD: 2 BOLUS PER DAY
     Route: 065
  15. RIVOTRIL [Concomitant]
     Dosage: AS NEEDED
     Route: 065
     Dates: start: 20101102, end: 20101107
  16. RIVOTRIL [Concomitant]
     Route: 065
  17. AERIUS [Concomitant]
     Route: 065
  18. AERIUS [Concomitant]
     Route: 065
  19. DUPHALAC [Concomitant]
     Route: 065
     Dates: start: 20101106, end: 20101110
  20. ZOPHREN [Concomitant]
     Route: 065
     Dates: start: 20101110, end: 20101110
  21. PLITICAN [Concomitant]
     Dosage: TDD: 20-92 MG/D
     Route: 065
     Dates: start: 20101103, end: 20101107
  22. PLITICAN [Concomitant]
     Dosage: TDD: 20-92 MG/D
     Route: 065
     Dates: start: 20101110, end: 20101110
  23. XANAX [Concomitant]
     Route: 065
     Dates: start: 20101106, end: 20101110
  24. BACTRIM [Concomitant]
     Route: 065
  25. BACTRIM [Concomitant]
     Route: 065
  26. NEURONTIN (FRANCE) [Concomitant]
     Route: 065
     Dates: start: 20101104, end: 20101112
  27. PROCTOLOG [Concomitant]
  28. FLIXOTIDE [Concomitant]
  29. LAROXYL [Concomitant]

REACTIONS (6)
  - Febrile bone marrow aplasia [Recovered/Resolved]
  - Mucosal inflammation [Recovered/Resolved]
  - Gingival bleeding [Recovered/Resolved]
  - Convulsion [Recovered/Resolved]
  - Epistaxis [Recovered/Resolved]
  - Epistaxis [Recovered/Resolved]
